FAERS Safety Report 4686147-3 (Version None)
Quarter: 2005Q2

REPORT INFORMATION
  Report Type: 
  Country: None (occurrence: None)
  Receive Date: 20050609
  Receipt Date: 20050222
  Transmission Date: 20051028
  Serious: Yes (Hospitalization)
  Sender: FDA-Public Use
  Company Number: US-MERCK-0502USA02690

PATIENT
  Age: 60 Year
  Sex: Male
  Weight: 80 kg

DRUGS (7)
  1. VIOXX [Suspect]
     Route: 048
     Dates: start: 19990101, end: 20040801
  2. ASPIRIN [Concomitant]
     Route: 065
  3. AVAPRO [Concomitant]
     Route: 065
  4. LOPRESSOR [Concomitant]
     Route: 065
  5. LIPITOR [Concomitant]
     Route: 065
  6. ZOCOR [Concomitant]
     Route: 048
  7. SAW PALMETTO STANDARDIZED EXTRACT [Concomitant]
     Route: 065

REACTIONS (12)
  - ABDOMINAL PAIN [None]
  - ACUTE MYOCARDIAL INFARCTION [None]
  - ANXIETY [None]
  - CARDIAC ARREST [None]
  - DEPRESSION [None]
  - DIZZINESS [None]
  - GASTRITIS [None]
  - HIATUS HERNIA [None]
  - HYPERTENSION [None]
  - OEDEMA [None]
  - POSTPERICARDIOTOMY SYNDROME [None]
  - WEIGHT DECREASED [None]
